FAERS Safety Report 4653819-6 (Version None)
Quarter: 2005Q2

REPORT INFORMATION
  Report Type: 
  Country: None (occurrence: None)
  Receive Date: 20050404
  Receipt Date: 20050118
  Transmission Date: 20051028
  Serious: No
  Sender: FDA-Public Use
  Company Number: USA050188694

PATIENT
  Age: 36 Year
  Sex: Female
  Weight: 61 kg

DRUGS (6)
  1. CYMBALTA [Suspect]
     Indication: DEPRESSION
     Dosage: 60 MG IN THE MORNING
  2. XANAX (ALPRAZOLAM DUM) [Concomitant]
  3. XANAX (ALPRAZOLAM DUM) [Concomitant]
  4. ADDERALL 10 [Concomitant]
  5. TOPAMAX [Concomitant]
  6. TRAZADONE (TRAZODONE) [Concomitant]

REACTIONS (9)
  - ALOPECIA [None]
  - CONSTIPATION [None]
  - DECREASED APPETITE [None]
  - DRY MOUTH [None]
  - FATIGUE [None]
  - HYPERHIDROSIS [None]
  - IMPULSIVE BEHAVIOUR [None]
  - MADAROSIS [None]
  - SOMNOLENCE [None]
